FAERS Safety Report 11265522 (Version 1)
Quarter: 2015Q3

REPORT INFORMATION
  Report Type: Spontaneous
  Country: US (occurrence: US)
  Receive Date: 20150713
  Receipt Date: 20150713
  Transmission Date: 20151125
  Serious: No
  Sender: FDA-Public Use
  Company Number: US-TAKEDA-2012-06901

PATIENT

DRUGS (6)
  1. REVLIMID [Concomitant]
     Active Substance: LENALIDOMIDE
     Indication: PRODUCT USED FOR UNKNOWN INDICATION
     Dosage: UNK
     Route: 065
  2. ZOMETA [Concomitant]
     Active Substance: ZOLEDRONIC ACID
     Indication: PRODUCT USED FOR UNKNOWN INDICATION
     Dosage: 3.3 MG, UNK
     Route: 065
     Dates: start: 20120914
  3. VELCADE [Suspect]
     Active Substance: BORTEZOMIB
     Indication: PLASMA CELL MYELOMA
     Dosage: 3.6 MG, CYCLIC
     Route: 058
     Dates: start: 20120831
  4. VELCADE [Suspect]
     Active Substance: BORTEZOMIB
     Dosage: 2.8 MG, CYCLIC
     Route: 058
     Dates: start: 20120914
  5. DEXAMETHASONE. [Concomitant]
     Active Substance: DEXAMETHASONE
     Indication: PRODUCT USED FOR UNKNOWN INDICATION
     Dosage: 20 MG, UNK
     Route: 065
     Dates: start: 20120907
  6. VELCADE [Suspect]
     Active Substance: BORTEZOMIB
     Dosage: 3.5 MG, CYCLIC
     Route: 058
     Dates: start: 20120907

REACTIONS (3)
  - Pain in extremity [Recovering/Resolving]
  - Malaise [Unknown]
  - Anaemia [Unknown]

NARRATIVE: CASE EVENT DATE: 20120831
